FAERS Safety Report 18265279 (Version 1)
Quarter: 2020Q3

REPORT INFORMATION
  Report Type: Report from Study
  Country: CA (occurrence: CA)
  Receive Date: 20200914
  Receipt Date: 20200914
  Transmission Date: 20201103
  Serious: Yes (Other)
  Sender: FDA-Public Use
  Company Number: CA-JAZZ-2020-CA-011843

PATIENT
  Sex: Female

DRUGS (41)
  1. XYREM [Suspect]
     Active Substance: SODIUM OXYBATE
     Dosage: 3.75 GRAM, BID
     Route: 048
     Dates: start: 20071024, end: 2007
  2. XYREM [Suspect]
     Active Substance: SODIUM OXYBATE
     Dosage: 5 GRAM, BID
     Route: 048
     Dates: start: 20071127, end: 2007
  3. XYREM [Suspect]
     Active Substance: SODIUM OXYBATE
     Dosage: 4.0 GRAM, FIRST DOSE
     Route: 048
     Dates: start: 20090408, end: 2009
  4. XYREM [Suspect]
     Active Substance: SODIUM OXYBATE
     Dosage: 3.5 GRAM, BID
     Route: 048
     Dates: start: 20100126, end: 201001
  5. XYREM [Suspect]
     Active Substance: SODIUM OXYBATE
     Dosage: 4.5 GRAM, BID
     Route: 048
     Dates: start: 20100131, end: 2010
  6. SYNTHROID [Concomitant]
     Active Substance: LEVOTHYROXINE SODIUM
     Indication: PRODUCT USED FOR UNKNOWN INDICATION
     Dosage: UNK, QD
     Route: 048
  7. MODAFINIL. [Concomitant]
     Active Substance: MODAFINIL
     Indication: PRODUCT USED FOR UNKNOWN INDICATION
     Dosage: 2 TABS 100MG, BID
  8. TOPIRAMATE. [Concomitant]
     Active Substance: TOPIRAMATE
     Indication: PRODUCT USED FOR UNKNOWN INDICATION
     Dosage: 2 TABS, BID
  9. VITAMIN D [COLECALCIFEROL] [Concomitant]
     Active Substance: CHOLECALCIFEROL
     Indication: PRODUCT USED FOR UNKNOWN INDICATION
     Dosage: 1 TAB, QD
  10. XYREM [Suspect]
     Active Substance: SODIUM OXYBATE
     Dosage: 6 GRAM, FIST DOSE
     Route: 048
     Dates: start: 20080220, end: 2008
  11. XYREM [Suspect]
     Active Substance: SODIUM OXYBATE
     Dosage: 5.75 GRAM, SECOND DOSE
     Route: 048
     Dates: start: 20080409, end: 2008
  12. XYREM [Suspect]
     Active Substance: SODIUM OXYBATE
     Dosage: 7 GRAM, FIRST DOSE
     Route: 048
     Dates: start: 20080604, end: 2008
  13. XYREM [Suspect]
     Active Substance: SODIUM OXYBATE
     Dosage: 5.75 GRAM, SECOND DOSE
     Route: 048
     Dates: start: 20080305, end: 2008
  14. XYREM [Suspect]
     Active Substance: SODIUM OXYBATE
     Dosage: 6.75 GRAM, FIRST DOSE
     Route: 048
     Dates: start: 20080409, end: 2008
  15. XYREM [Suspect]
     Active Substance: SODIUM OXYBATE
     Dosage: 4.5 GRAM, BID
     Route: 048
     Dates: start: 20071110, end: 2007
  16. XYREM [Suspect]
     Active Substance: SODIUM OXYBATE
     Dosage: 5.50 GRAM, SECOND DOSE
     Route: 048
     Dates: start: 20080101, end: 2008
  17. XYREM [Suspect]
     Active Substance: SODIUM OXYBATE
     Dosage: 5.75 GRAM, SECOND DOSE
     Route: 048
     Dates: start: 20080604, end: 2008
  18. XYREM [Suspect]
     Active Substance: SODIUM OXYBATE
     Dosage: 5 GRAM, BID
     Route: 048
     Dates: start: 20090311
  19. XYREM [Suspect]
     Active Substance: SODIUM OXYBATE
     Dosage: 4.25 GRAM, FIRST DOSE
     Route: 048
     Dates: start: 20100224, end: 20110202
  20. XYREM [Suspect]
     Active Substance: SODIUM OXYBATE
     Indication: FIBROMYALGIA
     Dosage: 11 GRAM
     Route: 048
     Dates: start: 200712, end: 2008
  21. XYREM [Suspect]
     Active Substance: SODIUM OXYBATE
     Dosage: 3.75 GRAM, BID
     Route: 048
     Dates: start: 20070920, end: 2007
  22. XYREM [Suspect]
     Active Substance: SODIUM OXYBATE
     Dosage: 11 GRAM
     Route: 048
     Dates: start: 200712, end: 2008
  23. XYREM [Suspect]
     Active Substance: SODIUM OXYBATE
     Dosage: 5.75 GRAM, FIRST DOSE
     Route: 048
     Dates: start: 20080101, end: 2008
  24. XYREM [Suspect]
     Active Substance: SODIUM OXYBATE
     Dosage: 5.7 GRAM, SECOND DOSE
     Route: 048
     Dates: start: 20080220, end: 2008
  25. XYREM [Suspect]
     Active Substance: SODIUM OXYBATE
     Dosage: 3.5 GRAM, THIRD DOSE
     Route: 048
     Dates: start: 20090408, end: 2009
  26. XYREM [Suspect]
     Active Substance: SODIUM OXYBATE
     Dosage: 3.75 GRAM, SECOND DOSE
     Route: 048
     Dates: start: 20100224, end: 20110202
  27. XYREM [Suspect]
     Active Substance: SODIUM OXYBATE
     Dosage: 3 GRAM, BID
     Route: 048
     Dates: start: 20121025
  28. TRAMADOL. [Concomitant]
     Active Substance: TRAMADOL
     Indication: PRODUCT USED FOR UNKNOWN INDICATION
     Dosage: 1, BID
  29. VENTOLINE [SALBUTAMOL] [Concomitant]
     Active Substance: ALBUTEROL SULFATE
     Indication: PRODUCT USED FOR UNKNOWN INDICATION
     Dosage: PUFFER PRN
  30. XYREM [Suspect]
     Active Substance: SODIUM OXYBATE
     Dosage: 3.75 GRAM, BID
     Route: 048
     Dates: start: 2010, end: 20100123
  31. OXYCOCET [Concomitant]
     Active Substance: ACETAMINOPHEN\OXYCODONE HYDROCHLORIDE
     Indication: PRODUCT USED FOR UNKNOWN INDICATION
     Dosage: 1 TAB PRN, QD
  32. VITAMIN B COMPLEX [Concomitant]
     Active Substance: CYANOCOBALAMIN\DEXPANTHENOL\NIACINAMIDE\PYRIDOXINE HYDROCHLORIDE\RIBOFLAVIN 5^-PHOSPHATE SODIUM\THIAMINE HYDROCHLORIDE\VITAMIN B COMPLEX
     Indication: PRODUCT USED FOR UNKNOWN INDICATION
     Dosage: 1 TAB, QD
  33. XYREM [Suspect]
     Active Substance: SODIUM OXYBATE
     Dosage: 6.25 GRAM, FIRST DOSE
     Route: 048
     Dates: start: 20080305, end: 2008
  34. METHYLPHENIDATE. [Concomitant]
     Active Substance: METHYLPHENIDATE
     Indication: PRODUCT USED FOR UNKNOWN INDICATION
  35. ROSUVASTATIN. [Concomitant]
     Active Substance: ROSUVASTATIN
     Indication: PRODUCT USED FOR UNKNOWN INDICATION
     Dosage: UNK, QD
  36. XYREM [Suspect]
     Active Substance: SODIUM OXYBATE
     Dosage: 2.25 GRAM, BID
     Route: 048
     Dates: start: 20070906, end: 2007
  37. XYREM [Suspect]
     Active Substance: SODIUM OXYBATE
     Dosage: 3.5 GRAM, SECOND DOSE
     Route: 048
     Dates: start: 20090408, end: 2009
  38. XYREM [Suspect]
     Active Substance: SODIUM OXYBATE
     Dosage: 4 GRAM, TID
     Route: 048
     Dates: start: 20090506, end: 2009
  39. XYREM [Suspect]
     Active Substance: SODIUM OXYBATE
     Dosage: 3.75 GRAM, BID
     Route: 048
     Dates: start: 20100130, end: 20100130
  40. XYREM [Suspect]
     Active Substance: SODIUM OXYBATE
     Dosage: 2.25 GRAM, BID
     Route: 048
     Dates: start: 20120731
  41. CIPRALEX [Concomitant]
     Active Substance: ESCITALOPRAM OXALATE
     Indication: PRODUCT USED FOR UNKNOWN INDICATION
     Dosage: UNK, QD

REACTIONS (1)
  - Peripheral nerve injury [Not Recovered/Not Resolved]
